FAERS Safety Report 4476999-4 (Version None)
Quarter: 2004Q4

REPORT INFORMATION
  Report Type: 
  Country: None (occurrence: None)
  Receive Date: 20041018
  Receipt Date: 20041007
  Transmission Date: 20050328
  Serious: Yes (Other)
  Sender: FDA-Public Use
  Company Number: JP-ABBOTT-04P-087-0277423-00

PATIENT
  Sex: Male

DRUGS (6)
  1. KLARICID SUSPENSION [Suspect]
     Indication: PHARYNGITIS
     Route: 048
     Dates: start: 20041002, end: 20041005
  2. ANHIBA [Suspect]
     Indication: PYREXIA
     Route: 054
     Dates: start: 20041002, end: 20041003
  3. TRANEXAMIC ACID [Concomitant]
     Indication: PHARYNGITIS
     Route: 048
     Dates: start: 20041002, end: 20041005
  4. CARBOCISTEINE LYSINE [Concomitant]
     Indication: PHARYNGITIS
     Route: 048
     Dates: start: 20041002, end: 20041005
  5. AMBROXOL HYDROCHLORIDE [Concomitant]
     Indication: ASTHMA
     Route: 048
     Dates: start: 20040424, end: 20041005
  6. MONTELUKAST [Concomitant]
     Indication: ASTHMA
     Route: 048
     Dates: start: 20040424, end: 20041005

REACTIONS (1)
  - HYPOTHERMIA [None]
